FAERS Safety Report 4562909-8 (Version None)
Quarter: 2005Q1

REPORT INFORMATION
  Report Type: 
  Country: None (occurrence: None)
  Receive Date: 20050121
  Receipt Date: 20050111
  Transmission Date: 20050727
  Serious: Yes (Hospitalization)
  Sender: FDA-Public Use
  Company Number: 2005010837

PATIENT
  Age: 74 Year
  Sex: Female

DRUGS (3)
  1. AROMASIN [Suspect]
     Indication: ILL-DEFINED DISORDER
     Dosage: 25 MG DAILY, ORAL
     Route: 048
     Dates: start: 20010901
  2. DIOVAN HCT [Concomitant]
  3. ASPIRIN [Concomitant]

REACTIONS (1)
  - NORMOCHROMIC NORMOCYTIC ANAEMIA [None]
